FAERS Safety Report 9232033 (Version 1)
Quarter: 2013Q2

REPORT INFORMATION
  Report Type: Spontaneous
  Country: US (occurrence: US)
  Receive Date: 20130415
  Receipt Date: 20130415
  Transmission Date: 20140414
  Serious: No
  Sender: FDA-Public Use
  Company Number: US-PFIZER INC-2013115801

PATIENT
  Age: 84 Year
  Sex: Female
  Weight: 68.03 kg

DRUGS (6)
  1. THERMACARE HEATWRAPS [Suspect]
     Indication: NECK INJURY
     Dosage: UNK
  2. LIPITOR [Suspect]
     Dosage: HALF A TABLET OF 40MG,1X/DAY
     Route: 048
     Dates: start: 2013
  3. OS-CAL D [Concomitant]
     Dosage: 500 MG/200IU
  4. ACIPHEX [Concomitant]
     Dosage: 20 MG, UNK
  5. ROCALTROL [Concomitant]
     Dosage: 0.25 UG, UNK
  6. ASPIRIN [Concomitant]
     Dosage: 81 MG, UNK

REACTIONS (2)
  - Device misuse [Unknown]
  - Pruritus [Unknown]
